FAERS Safety Report 25562339 (Version 1)
Quarter: 2025Q3

REPORT INFORMATION
  Report Type: Spontaneous
  Country: EU (occurrence: EU)
  Receive Date: 20250716
  Receipt Date: 20250716
  Transmission Date: 20251020
  Serious: Yes (Hospitalization)
  Sender: EMD SERONO INC
  Company Number: None

PATIENT
  Sex: Female

DRUGS (5)
  1. CETROTIDE [Suspect]
     Active Substance: CETRORELIX ACETATE
     Indication: Controlled ovarian stimulation
     Dates: start: 20250430
  2. FOLLITROPIN DELTA [Suspect]
     Active Substance: FOLLITROPIN DELTA
     Indication: Controlled ovarian stimulation
     Dates: start: 20250426
  3. SUPREFACT [Suspect]
     Active Substance: BUSERELIN
     Indication: Controlled ovarian stimulation
  4. FOLIC ACID [Concomitant]
     Active Substance: FOLIC ACID
     Indication: Product used for unknown indication
     Dosage: TAKEN LONG TERM PRIOR TO AND DURING TREATMENT
  5. INOSITOL [Concomitant]
     Active Substance: INOSITOL
     Indication: Product used for unknown indication

REACTIONS (1)
  - Adnexal torsion [Recovered/Resolved with Sequelae]

NARRATIVE: CASE EVENT DATE: 20250511
